FAERS Safety Report 5868862-9 (Version None)
Quarter: 2008Q3

REPORT INFORMATION
  Report Type: 
  Country: None (occurrence: None)
  Receive Date: 20080903
  Receipt Date: 20080902
  Transmission Date: 20090109
  Serious: Yes (Other)
  Sender: FDA-Public Use
  Company Number: PHHO1991GB00001

PATIENT
  Sex: Female
  Weight: 65 kg

DRUGS (4)
  1. EXELON [Suspect]
     Dosage: MEDIUM DOSE
     Route: 048
     Dates: start: 19911016, end: 19911023
  2. SENNA (SENNA) [Concomitant]
  3. LACTULOSE [Concomitant]
  4. ACETAMINOPHEN [Concomitant]

REACTIONS (4)
  - ABDOMINAL PAIN [None]
  - DIARRHOEA [None]
  - HYPERTENSION [None]
  - VOMITING [None]
